FAERS Safety Report 6003336-6 (Version None)
Quarter: 2008Q4

REPORT INFORMATION
  Report Type: 
  Country: None (occurrence: None)
  Receive Date: 20081216
  Receipt Date: 20081119
  Transmission Date: 20090506
  Serious: No
  Sender: FDA-Public Use
  Company Number: US-BAYER-200839079NA

PATIENT
  Weight: 60 kg

DRUGS (3)
  1. MAGNEVIST [Suspect]
     Indication: NUCLEAR MAGNETIC RESONANCE IMAGING
     Dosage: TOTAL DAILY DOSE: 13 ML  UNIT DOSE: 100 ML
     Route: 042
     Dates: start: 20081117, end: 20081117
  2. SYNTHROID [Concomitant]
  3. NEXIUM [Concomitant]

REACTIONS (1)
  - NAUSEA [None]
